FAERS Safety Report 7411642-3 (Version None)
Quarter: 2011Q2

REPORT INFORMATION
  Report Type: 
  Country: None (occurrence: None)
  Receive Date: 20110413
  Receipt Date: 20101006
  Transmission Date: 20111010
  Serious: Yes (Other)
  Sender: FDA-Public Use
  Company Number: US-BRISTOL-MYERS SQUIBB COMPANY-15321870

PATIENT

DRUGS (2)
  1. XELOX [Suspect]
  2. ERBITUX [Suspect]

REACTIONS (1)
  - INTERSTITIAL LUNG DISEASE [None]
